FAERS Safety Report 10419593 (Version 1)
Quarter: 2014Q2

REPORT INFORMATION
  Report Type: Spontaneous
  Country: US (occurrence: None)
  Receive Date: 20140625
  Receipt Date: 20140625
  Transmission Date: 20141212
  Serious: No
  Sender: FDA-Public Use
  Company Number: A-NJ2014-94085

PATIENT
  Age: 31 Year
  Sex: Female

DRUGS (1)
  1. OPSUMIT (MACITENTAN) TABLET [Suspect]
     Indication: PRODUCT USED FOR UNKNOWN INDICATION
     Route: 048
     Dates: start: 20140116

REACTIONS (3)
  - Acne [None]
  - Dry skin [None]
  - Rash [None]
